FAERS Safety Report 4659682-1 (Version None)
Quarter: 2005Q2

REPORT INFORMATION
  Report Type: 
  Country: None (occurrence: None)
  Receive Date: 20050420
  Receipt Date: 20050225
  Transmission Date: 20051028
  Serious: No
  Sender: FDA-Public Use
  Company Number: PHEH2005US02576

PATIENT
  Age: 65 Year
  Sex: Female
  Weight: 78.9259 kg

DRUGS (6)
  1. ENABLEX [Suspect]
     Dosage: 7.5 MG QD ORAL, 7.5 MG BID ORAL
     Route: 048
     Dates: start: 20050212, end: 20050223
  2. ENABLEX [Suspect]
     Dosage: 7.5 MG QD ORAL, 7.5 MG BID ORAL
     Route: 048
     Dates: start: 20050224, end: 20050224
  3. MIACALCIN [Concomitant]
  4. METFORMIN HCL [Concomitant]
  5. LIPITOR [Concomitant]
  6. LISINOPRIL [Concomitant]

REACTIONS (2)
  - DYSPNOEA [None]
  - PALPITATIONS [None]
